FAERS Safety Report 5482664-7 (Version None)
Quarter: 2007Q4

REPORT INFORMATION
  Report Type: 
  Country: None (occurrence: None)
  Receive Date: 20071011
  Receipt Date: 20071003
  Transmission Date: 20080405
  Serious: Yes (Hospitalization, Other)
  Sender: FDA-Public Use
  Company Number: FR-ELI_LILLY_AND_COMPANY-FR200707003482

PATIENT
  Sex: Female

DRUGS (9)
  1. FORTEO [Suspect]
     Indication: OSTEOPOROSIS
     Dosage: 20 UG, DAILY (1/D)
     Route: 058
     Dates: start: 20070611
  2. CACIT D3 [Concomitant]
  3. COUMADIN [Concomitant]
  4. NOCTRAN [Concomitant]
  5. FENOFIBRATE [Concomitant]
  6. ACETAMINOPHEN [Concomitant]
  7. EUPHYTOSE [Concomitant]
  8. PIASCLEDINE [Concomitant]
  9. DAFLON [Concomitant]

REACTIONS (1)
  - CATARACT [None]
